FAERS Safety Report 13347001 (Version 1)
Quarter: 2017Q1

REPORT INFORMATION
  Report Type: Spontaneous
  Country: GB (occurrence: GB)
  Receive Date: 20170317
  Receipt Date: 20170317
  Transmission Date: 20170428
  Serious: Yes (Hospitalization)
  Sender: FDA-Public Use
  Company Number: GB-FRESENIUS KABI-FK201702158

PATIENT
  Age: 76 Year
  Sex: Female

DRUGS (9)
  1. PARACETAMOL (MANUFACTURER UNKNOWN) [Suspect]
     Active Substance: ACETAMINOPHEN
     Indication: INTERVERTEBRAL DISCITIS
     Route: 048
  2. FLUCLOXACILLIN [Concomitant]
     Active Substance: FLUCLOXACILLIN
     Indication: INTERVERTEBRAL DISCITIS
     Route: 042
  3. RIFAMPICIN [Concomitant]
     Active Substance: RIFAMPIN
     Indication: PSOAS ABSCESS
  4. PARACETAMOL (MANUFACTURER UNKNOWN) [Suspect]
     Active Substance: ACETAMINOPHEN
     Indication: EXTRADURAL ABSCESS
  5. PARACETAMOL (MANUFACTURER UNKNOWN) [Suspect]
     Active Substance: ACETAMINOPHEN
     Indication: PSOAS ABSCESS
  6. RIFAMPICIN [Concomitant]
     Active Substance: RIFAMPIN
     Indication: EXTRADURAL ABSCESS
  7. RIFAMPICIN [Concomitant]
     Active Substance: RIFAMPIN
     Indication: INTERVERTEBRAL DISCITIS
     Route: 048
  8. FLUCLOXACILLIN [Concomitant]
     Active Substance: FLUCLOXACILLIN
     Indication: PSOAS ABSCESS
  9. FLUCLOXACILLIN [Concomitant]
     Active Substance: FLUCLOXACILLIN
     Indication: EXTRADURAL ABSCESS

REACTIONS (1)
  - Metabolic acidosis [Recovered/Resolved]
